FAERS Safety Report 4734878-9 (Version None)
Quarter: 2005Q3

REPORT INFORMATION
  Report Type: 
  Country: None (occurrence: None)
  Receive Date: 20050804
  Receipt Date: 20050330
  Transmission Date: 20060218
  Serious: Yes (Hospitalization, Other)
  Sender: FDA-Public Use
  Company Number: 2005UW04994

PATIENT
  Age: 69 Year
  Sex: Female
  Weight: 59.1 kg

DRUGS (9)
  1. ARIMIDEX [Suspect]
     Indication: BREAST CANCER
     Route: 048
     Dates: start: 20050317, end: 20050301
  2. ARIMIDEX [Suspect]
     Route: 048
     Dates: start: 20050301, end: 20050327
  3. PRILOSEC [Concomitant]
  4. ASPIRIN [Concomitant]
  5. B12 [Concomitant]
  6. CALCIUM GLUCONATE [Concomitant]
  7. MYLANTA [Concomitant]
  8. ASCORBIC ACID [Concomitant]
  9. MULTI-VITAMIN [Concomitant]

REACTIONS (6)
  - CHEST PAIN [None]
  - DIZZINESS [None]
  - NECK PAIN [None]
  - PALPITATIONS [None]
  - THROAT IRRITATION [None]
  - VENTRICULAR EXTRASYSTOLES [None]
